FAERS Safety Report 7582344-8 (Version None)
Quarter: 2011Q2

REPORT INFORMATION
  Report Type: 
  Country: None (occurrence: None)
  Receive Date: 20110630
  Receipt Date: 20110616
  Transmission Date: 20111010
  Serious: Yes (Hospitalization)
  Sender: FDA-Public Use
  Company Number: CA-JNJFOC-20101200480

PATIENT
  Sex: Female
  Weight: 110 kg

DRUGS (3)
  1. REMICADE [Suspect]
     Route: 042
     Dates: start: 20090901
  2. REMICADE [Suspect]
     Indication: CROHN'S DISEASE
     Route: 042
     Dates: start: 20101004
  3. ACETAMINOPHEN W/ CODEINE TAB [Concomitant]

REACTIONS (2)
  - APPENDICECTOMY [None]
  - ABDOMINAL PAIN [None]
